FAERS Safety Report 4340633-4 (Version None)
Quarter: 2004Q2

REPORT INFORMATION
  Report Type: 
  Country: None (occurrence: None)
  Receive Date: 20040413
  Receipt Date: 20040330
  Transmission Date: 20050107
  Serious: Yes (Other)
  Sender: FDA-Public Use
  Company Number: US-JNJFOC-20031004479

PATIENT
  Age: 50 Year
  Sex: Female
  Weight: 81.6475 kg

DRUGS (38)
  1. REMICADE [Suspect]
     Indication: RHEUMATOID ARTHRITIS
     Dosage: SEE IMAGE
     Route: 042
     Dates: start: 20020325
  2. REMICADE [Suspect]
     Indication: RHEUMATOID ARTHRITIS
     Dosage: SEE IMAGE
     Route: 042
     Dates: start: 20020409
  3. REMICADE [Suspect]
     Indication: RHEUMATOID ARTHRITIS
     Dosage: SEE IMAGE
     Route: 042
     Dates: start: 20020507
  4. REMICADE [Suspect]
     Indication: RHEUMATOID ARTHRITIS
     Dosage: SEE IMAGE
     Route: 042
     Dates: start: 20020702
  5. REMICADE [Suspect]
     Indication: RHEUMATOID ARTHRITIS
     Dosage: SEE IMAGE
     Route: 042
     Dates: start: 20020813
  6. REMICADE [Suspect]
     Indication: RHEUMATOID ARTHRITIS
     Dosage: SEE IMAGE
     Route: 042
     Dates: start: 20021009
  7. REMICADE [Suspect]
     Indication: RHEUMATOID ARTHRITIS
     Dosage: SEE IMAGE
     Route: 042
     Dates: start: 20021112
  8. REMICADE [Suspect]
     Indication: RHEUMATOID ARTHRITIS
     Dosage: SEE IMAGE
     Route: 042
     Dates: start: 20030819
  9. REMICADE [Suspect]
     Indication: RHEUMATOID ARTHRITIS
     Dosage: SEE IMAGE
     Route: 042
     Dates: start: 20031007
  10. BENADRYL [Suspect]
     Indication: PRURITUS
     Dosage: 25 MG INTRAVENOUS
     Route: 042
     Dates: start: 20020813
  11. FOLIC ACID [Concomitant]
  12. ARAVA [Concomitant]
  13. VALIUM [Concomitant]
  14. VICODIN [Concomitant]
  15. XANAX [Concomitant]
  16. ACETAMINOPHEN [Concomitant]
  17. CETIRIZINE HCL [Concomitant]
  18. METHYLPREDNISOLONE [Concomitant]
  19. . [Concomitant]
  20. . [Concomitant]
  21. . [Concomitant]
  22. . [Concomitant]
  23. . [Concomitant]
  24. . [Concomitant]
  25. . [Concomitant]
  26. . [Concomitant]
  27. . [Concomitant]
  28. . [Concomitant]
  29. . [Concomitant]
  30. . [Concomitant]
  31. . [Concomitant]
  32. . [Concomitant]
  33. . [Concomitant]
  34. . [Concomitant]
  35. . [Concomitant]
  36. . [Concomitant]
  37. . [Concomitant]
  38. . [Concomitant]

REACTIONS (13)
  - BACK PAIN [None]
  - DYSPNOEA [None]
  - FEELING ABNORMAL [None]
  - HYPOAESTHESIA [None]
  - INFUSION RELATED REACTION [None]
  - MUSCLE CRAMP [None]
  - NAUSEA [None]
  - NECK PAIN [None]
  - PRURITUS GENERALISED [None]
  - SALIVARY HYPERSECRETION [None]
  - SWOLLEN TONGUE [None]
  - TONGUE BLISTERING [None]
  - VOMITING [None]
